FAERS Safety Report 13014019 (Version 4)
Quarter: 2017Q2

REPORT INFORMATION
  Report Type: Report from Study
  Country: CA (occurrence: CA)
  Receive Date: 20161209
  Receipt Date: 20170419
  Transmission Date: 20170830
  Serious: Yes (Hospitalization, Other)
  Sender: FDA-Public Use
  Company Number: CA-JNJFOC-20160801445

PATIENT
  Age: 70 Year
  Sex: Male
  Weight: 71 kg

DRUGS (6)
  1. REMICADE [Suspect]
     Active Substance: INFLIXIMAB
     Indication: CROHN^S DISEASE
     Route: 042
     Dates: start: 20170412
  2. REMICADE [Suspect]
     Active Substance: INFLIXIMAB
     Indication: CROHN^S DISEASE
     Route: 042
     Dates: start: 20170301
  3. REMICADE [Suspect]
     Active Substance: INFLIXIMAB
     Indication: CROHN^S DISEASE
     Route: 042
     Dates: start: 20161206
  4. REMICADE [Suspect]
     Active Substance: INFLIXIMAB
     Indication: CROHN^S DISEASE
     Route: 042
     Dates: start: 20150217
  5. REMICADE [Suspect]
     Active Substance: INFLIXIMAB
     Indication: CROHN^S DISEASE
     Dosage: DOSE NUMBER 15
     Route: 042
     Dates: start: 20160914
  6. REMICADE [Suspect]
     Active Substance: INFLIXIMAB
     Indication: CROHN^S DISEASE
     Dosage: NUMBER OF INFUSIONS: 18
     Route: 042
     Dates: start: 20170117

REACTIONS (12)
  - Procedural complication [Unknown]
  - Abdominal pain [Recovering/Resolving]
  - Haematochezia [Not Recovered/Not Resolved]
  - Angina pectoris [Unknown]
  - Off label use [Unknown]
  - Abdominal distension [Not Recovered/Not Resolved]
  - Frequent bowel movements [Recovered/Resolved]
  - Product use issue [Unknown]
  - Proctalgia [Unknown]
  - Fatigue [Unknown]
  - Vomiting [Not Recovered/Not Resolved]
  - Nausea [Not Recovered/Not Resolved]

NARRATIVE: CASE EVENT DATE: 20150217
